FAERS Safety Report 6590752-7 (Version None)
Quarter: 2010Q1

REPORT INFORMATION
  Report Type: 
  Country: None (occurrence: None)
  Receive Date: 20100219
  Receipt Date: 20100210
  Transmission Date: 20100710
  Serious: Yes (Death, Hospitalization)
  Sender: FDA-Public Use
  Company Number: JP-BAXTER-2010BH003007

PATIENT
  Age: 89 Year
  Sex: Female

DRUGS (3)
  1. EXTRANEAL [Suspect]
     Indication: RENAL FAILURE
     Route: 033
     Dates: start: 20050113, end: 20100208
  2. DIANEAL PD-2 W/ DEXTROSE 1.5% [Suspect]
     Indication: RENAL FAILURE
     Route: 033
     Dates: start: 20080805, end: 20090602
  3. DIANEAL PD-2 W/ DEXTROSE 1.5% [Suspect]
     Indication: RENAL FAILURE
     Route: 033
     Dates: start: 20080805, end: 20100208

REACTIONS (4)
  - ARTERIOSCLEROSIS [None]
  - INFLAMMATION [None]
  - MALNUTRITION [None]
  - MARASMUS [None]
